FAERS Safety Report 14734341 (Version 1)
Quarter: 2018Q2

REPORT INFORMATION
  Report Type: Spontaneous
  Country: US (occurrence: US)
  Receive Date: 20180403
  Receipt Date: 20180403
  Transmission Date: 20180711
  Serious: Yes (Hospitalization)
  Sender: FDA-Public Use
  Company Number: None

PATIENT
  Age: 55 Year
  Sex: Male
  Weight: 94.57 kg

DRUGS (19)
  1. THIAMINE H [Concomitant]
  2. RENAGEL [Concomitant]
     Active Substance: SEVELAMER HYDROCHLORIDE
  3. AMLODIPINE [Concomitant]
     Active Substance: AMLODIPINE BESYLATE
  4. VITAMIN B [Concomitant]
     Active Substance: VITAMIN B
  5. MINOXODIL [Concomitant]
  6. VITAMIN D3 [Concomitant]
     Active Substance: CHOLECALCIFEROL
  7. BENAZEPRIL [Concomitant]
     Active Substance: BENAZEPRIL HYDROCHLORIDE
  8. AGELESS MALE [Concomitant]
     Active Substance: DIETARY SUPPLEMENT
  9. METHADONE [Concomitant]
     Active Substance: METHADONE HYDROCHLORIDE
  10. CLINDAMYCIN. [Concomitant]
     Active Substance: CLINDAMYCIN
  11. ACETAMINOPHEN. [Concomitant]
     Active Substance: ACETAMINOPHEN
  12. ARANESP [Concomitant]
     Active Substance: DARBEPOETIN ALFA
  13. LEVOTHYROXINE. [Concomitant]
     Active Substance: LEVOTHYROXINE
  14. EPOGEN [Concomitant]
     Active Substance: ERYTHROPOIETIN
  15. NIFEDIPINE. [Concomitant]
     Active Substance: NIFEDIPINE
  16. ZEPATIER [Suspect]
     Active Substance: ELBASVIR\GRAZOPREVIR
     Indication: HEPATITIS C
     Dosage: ?          OTHER DOSE:50MG-100MG;?
     Route: 048
     Dates: start: 20170415, end: 20170804
  17. CLOTRIMAZO [Concomitant]
  18. NEXIUM [Concomitant]
     Active Substance: ESOMEPRAZOLE MAGNESIUM
  19. VANCOMYCIN [Concomitant]
     Active Substance: VANCOMYCIN

REACTIONS (2)
  - Hyperkalaemia [None]
  - Hypoglycaemia [None]

NARRATIVE: CASE EVENT DATE: 20170725
